FAERS Safety Report 25050112 (Version 1)
Quarter: 2025Q1

REPORT INFORMATION
  Report Type: Spontaneous
  Country: US (occurrence: US)
  Receive Date: 20250307
  Receipt Date: 20250307
  Transmission Date: 20250409
  Serious: Yes (Life-Threatening, Hospitalization, Other)
  Sender: XELLIA PHARMACEUTICALS
  Company Number: US-Axellia-005555

PATIENT
  Age: 75 Year
  Sex: Male

DRUGS (4)
  1. POLYMYXIN B [Suspect]
     Active Substance: POLYMYXIN B
     Indication: Antibiotic therapy
     Route: 042
  2. MEROPENEM [Suspect]
     Active Substance: MEROPENEM
     Indication: Antibiotic therapy
     Route: 042
  3. MINOCYCLINE [Suspect]
     Active Substance: MINOCYCLINE HYDROCHLORIDE
     Indication: Antibiotic therapy
     Route: 042
  4. VANCOMYCIN [Suspect]
     Active Substance: VANCOMYCIN
     Indication: Antibiotic therapy

REACTIONS (1)
  - Acute kidney injury [Recovered/Resolved]
